FAERS Safety Report 16550876 (Version 1)
Quarter: 2019Q3

REPORT INFORMATION
  Report Type: Spontaneous
  Country: IL (occurrence: IL)
  Receive Date: 20190710
  Receipt Date: 20190710
  Transmission Date: 20191004
  Serious: Yes (Other)
  Sender: FDA-Public Use
  Company Number: IL-TEVA-2019-IL-1073791

PATIENT
  Sex: Female

DRUGS (1)
  1. PROPYLTHIOURACIL (PTU) [Suspect]
     Active Substance: PROPYLTHIOURACIL
     Route: 065

REACTIONS (3)
  - Hypoglycaemia [Unknown]
  - Hepatic failure [Unknown]
  - Jaundice [Unknown]
